FAERS Safety Report 10476576 (Version 1)
Quarter: 2014Q3

REPORT INFORMATION
  Report Type: Spontaneous
  Country: US (occurrence: None)
  Receive Date: 20140923
  Receipt Date: 20140923
  Transmission Date: 20150326
  Serious: Yes (Other)
  Sender: FDA-Public Use
  Company Number: 001803285A

PATIENT
  Age: 52 Year
  Sex: Female

DRUGS (3)
  1. PROACTIV REPAIRING TREATMENT [Suspect]
     Active Substance: BENZOYL PEROXIDE
     Indication: ACNE
     Dosage: ONCE DAILY DERMAL
     Dates: start: 20140825
  2. BLOOD PRESSURE MEDICATION [Concomitant]
     Active Substance: UNSPECIFIED INGREDIENT
  3. PROACTIV RENEWING CLEANSER [Suspect]
     Active Substance: BENZOYL PEROXIDE
     Indication: ACNE
     Dosage: ONCE DAILY DERMAL
     Dates: start: 20140828

REACTIONS (6)
  - Erythema [None]
  - Lacrimation increased [None]
  - Dyspnoea [None]
  - Scratch [None]
  - Tenderness [None]
  - Burning sensation [None]

NARRATIVE: CASE EVENT DATE: 20140825
